FAERS Safety Report 8343396-0 (Version None)
Quarter: 2012Q2

REPORT INFORMATION
  Report Type: 
  Country: None (occurrence: None)
  Receive Date: 20120508
  Receipt Date: 20120427
  Transmission Date: 20120825
  Serious: Yes (Hospitalization)
  Sender: FDA-Public Use
  Company Number: US-BRISTOL-MYERS SQUIBB COMPANY-16555765

PATIENT
  Sex: Female

DRUGS (4)
  1. LEXAPRO [Concomitant]
  2. NEURONTIN [Concomitant]
  3. KLONOPIN [Concomitant]
  4. ABILIFY [Suspect]
     Indication: BIPOLAR DISORDER

REACTIONS (2)
  - PARKINSONISM [None]
  - DIVERTICULITIS [None]
